FAERS Safety Report 9146791 (Version 1)
Quarter: 2013Q1

REPORT INFORMATION
  Report Type: Spontaneous
  Country: US (occurrence: None)
  Receive Date: 20130204
  Receipt Date: 20130204
  Transmission Date: 20140127
  Serious: Yes (Death)
  Sender: FDA-Public Use
  Company Number: 2013010122

PATIENT
  Sex: 0

DRUGS (10)
  1. ZOLPIDEM [Suspect]
  2. CARISOPRODOL (CARISOPRODOL) [Suspect]
  3. BUPROPION [Suspect]
  4. ACETAMINOPHEN [Suspect]
  5. DULOXETINE [Suspect]
  6. HYDROCODONE [Suspect]
  7. DIHYDROCODEINE [Suspect]
  8. LAMOTRIGINE (LAMOTRIGINE) [Suspect]
  9. DIPHENHYDRAMINE [Suspect]
  10. QUETIAPINE (QUETIAPINE) (QUETIAPINE) [Suspect]

REACTIONS (4)
  - Drug level increased [None]
  - Drug interaction [None]
  - Toxicity to various agents [None]
  - Depressed level of consciousness [None]
